FAERS Safety Report 14600864 (Version 1)
Quarter: 2018Q1

REPORT INFORMATION
  Report Type: Spontaneous
  Country: DE (occurrence: DE)
  Receive Date: 20180305
  Receipt Date: 20180305
  Transmission Date: 20180509
  Serious: Yes (Other)
  Sender: FDA-Public Use
  Company Number: DE-OTSUKA-2018_004567

PATIENT
  Age: 37 Year
  Sex: Female
  Weight: 84 kg

DRUGS (3)
  1. L-THYROXIN [Concomitant]
     Active Substance: LEVOTHYROXINE SODIUM
     Indication: HYPOTHYROIDISM
     Dosage: 50 [UG/D ]/ ALTERNATIVE 25 OR 50 [0. - 39.6. GESTATIONAL WEEK]
     Route: 048
     Dates: start: 20161120, end: 20170826
  2. ARIPIPRAZOLE. [Suspect]
     Active Substance: ARIPIPRAZOLE
     Indication: PSYCHOTIC DISORDER
     Dosage: 10 MG, QD (0. - 39.6. GESTATIONAL WEEK)
     Route: 048
     Dates: start: 20161120, end: 20170826
  3. FOLIC ACID. [Concomitant]
     Active Substance: FOLIC ACID
     Indication: PROPHYLAXIS OF NEURAL TUBE DEFECT
     Dosage: UNK
     Route: 048

REACTIONS (1)
  - Gestational diabetes [Recovered/Resolved]
